FAERS Safety Report 21065291 (Version 1)
Quarter: 2022Q3

REPORT INFORMATION
  Report Type: Spontaneous
  Country: US (occurrence: None)
  Receive Date: 20220711
  Receipt Date: 20220711
  Transmission Date: 20221026
  Serious: Yes (Hospitalization)
  Sender: FDA-Public Use
  Company Number: None

PATIENT
  Sex: Male

DRUGS (2)
  1. ALLERGY (DIPHENHYDRAMINE HYDROCHLORIDE) [Suspect]
     Active Substance: DIPHENHYDRAMINE HYDROCHLORIDE
     Indication: Polyneuropathy
     Dosage: OTHER FREQUENCY : EVERY 3 DAYS;?
     Route: 048
     Dates: start: 202205
  2. ACETAMINOPHEN [Suspect]
     Active Substance: ACETAMINOPHEN
     Indication: Polyneuropathy
     Dosage: OTHER FREQUENCY : EVERY 3 DAYS;?
     Route: 048
     Dates: start: 202206

REACTIONS (2)
  - Wound infection [None]
  - Osteomyelitis [None]
